FAERS Safety Report 20813508 (Version 1)
Quarter: 2022Q2

REPORT INFORMATION
  Report Type: Report from Study
  Country: DK (occurrence: DK)
  Receive Date: 20220511
  Receipt Date: 20220511
  Transmission Date: 20220721
  Serious: Yes (Hospitalization, Other)
  Sender: FDA-Public Use
  Company Number: DK-BRISTOL-MYERS SQUIBB COMPANY-2022-013655

PATIENT
  Age: 81 Year
  Sex: Female
  Weight: 65 kg

DRUGS (25)
  1. DEXAMETHASONE [Suspect]
     Active Substance: DEXAMETHASONE
     Indication: Plasma cell myeloma
     Route: 048
     Dates: start: 20220207, end: 20220208
  2. ELIQUIS [Suspect]
     Active Substance: APIXABAN
     Indication: Product used for unknown indication
     Dosage: 5 MG
     Route: 048
     Dates: start: 20210714
  3. BORTEZOMIB [Suspect]
     Active Substance: BORTEZOMIB
     Indication: Plasma cell myeloma
     Route: 058
     Dates: start: 20220207, end: 20220207
  4. ACICLODAN [Concomitant]
     Indication: Prophylaxis
     Dosage: 400 MG
     Route: 048
     Dates: start: 20201015
  5. ALLOPURINOL [Concomitant]
     Active Substance: ALLOPURINOL
     Indication: Product used for unknown indication
     Dosage: 300 MG
     Route: 048
     Dates: start: 20220207
  6. AMLODIPINE BESYLATE [Concomitant]
     Active Substance: AMLODIPINE BESYLATE
     Indication: Product used for unknown indication
     Dosage: 10 MG?FREQUENCY : ONCE
     Route: 048
     Dates: start: 20160106, end: 20220311
  7. CALCIUM\VITAMIN D [Concomitant]
     Active Substance: CALCIUM\VITAMIN D
     Indication: Prophylaxis
     Dosage: 1 TABLET
     Route: 048
     Dates: start: 20211014
  8. DIGOXIN [Concomitant]
     Active Substance: DIGOXIN
     Indication: Product used for unknown indication
     Dosage: 0.5+0.125 MG
     Route: 048
     Dates: start: 20220217, end: 20220217
  9. DIGOXIN [Concomitant]
     Active Substance: DIGOXIN
     Dosage: 0.125 MG
     Route: 048
     Dates: start: 20220218
  10. FILGRASTIM [Concomitant]
     Active Substance: FILGRASTIM
     Indication: Adverse event
     Dosage: 60 MIU/L
     Route: 058
     Dates: start: 20220223, end: 20220228
  11. FILGRASTIM [Concomitant]
     Active Substance: FILGRASTIM
     Dosage: 60 MIU/L
     Route: 058
     Dates: start: 20220228, end: 20220302
  12. FURIX [Concomitant]
     Indication: Product used for unknown indication
     Dosage: 80+40 MG
     Route: 048
     Dates: start: 20210714, end: 20220216
  13. FURIX [Concomitant]
     Dosage: 40+40 MG
     Route: 048
     Dates: start: 20220217
  14. GABAPENTIN [Concomitant]
     Active Substance: GABAPENTIN
     Indication: Product used for unknown indication
     Dosage: 300 MG
     Route: 048
     Dates: start: 20210428
  15. POTASSIUM CHLORIDE [Concomitant]
     Active Substance: POTASSIUM CHLORIDE
     Indication: Adverse event
     Dosage: 750 MG
     Route: 048
     Dates: start: 20210714
  16. POTASSIUM CHLORIDE [Concomitant]
     Active Substance: POTASSIUM CHLORIDE
     Dosage: 3000 MG?FREQUENCY : ONCE
     Route: 048
     Dates: start: 20220228, end: 20220228
  17. ACETAMINOPHEN [Concomitant]
     Active Substance: ACETAMINOPHEN
     Indication: Product used for unknown indication
     Dosage: 1 G?FREQUENCY : PRN
     Route: 048
     Dates: start: 20190304
  18. PRIVIGEN [Concomitant]
     Active Substance: HUMAN IMMUNOGLOBULIN G
     Indication: Product used for unknown indication
     Dosage: 20 G
     Route: 042
     Dates: start: 20201229
  19. METOPROLOL SUCCINATE [Concomitant]
     Active Substance: METOPROLOL SUCCINATE
     Indication: Product used for unknown indication
     Dosage: 50 MG
     Route: 048
     Dates: start: 20220302, end: 20220311
  20. METOPROLOL TARTRATE [Concomitant]
     Active Substance: METOPROLOL TARTRATE
     Indication: Product used for unknown indication
     Dosage: 25 MG
     Route: 048
     Dates: start: 20220311
  21. SOTROVIMAB [Concomitant]
     Active Substance: SOTROVIMAB
     Indication: Adverse event
     Dosage: 500 MG
     Route: 042
     Dates: start: 20220225, end: 20220225
  22. PIPERACILLIN SODIUM\TAZOBACTAM SODIUM [Concomitant]
     Active Substance: PIPERACILLIN SODIUM\TAZOBACTAM SODIUM
     Indication: Adverse event
     Dosage: 4 G
     Route: 042
     Dates: start: 20220223, end: 20220228
  23. VEKLURY [Concomitant]
     Active Substance: REMDESIVIR
     Indication: Adverse event
     Dosage: 200 MG?FREQUENCY : ONCE
     Route: 042
     Dates: start: 20220225, end: 20220225
  24. VEKLURY [Concomitant]
     Active Substance: REMDESIVIR
     Dosage: 100 MG
     Route: 042
     Dates: start: 20220226, end: 20220301
  25. FILGRASTIM [Concomitant]
     Active Substance: FILGRASTIM
     Indication: Product used for unknown indication
     Dosage: 30 IU
     Route: 058
     Dates: start: 20220207, end: 20220217

REACTIONS (1)
  - Syncope [Not Recovered/Not Resolved]

NARRATIVE: CASE EVENT DATE: 20220317
